FAERS Safety Report 8193096-5 (Version None)
Quarter: 2012Q1

REPORT INFORMATION
  Report Type: 
  Country: None (occurrence: None)
  Receive Date: 20120308
  Receipt Date: 20120308
  Transmission Date: 20120608
  Serious: Yes (Life-Threatening, Hospitalization)
  Sender: FDA-Public Use
  Company Number: None

PATIENT
  Age: 44 Year
  Sex: Male
  Weight: 100 kg

DRUGS (2)
  1. ZICONOTIDE [Suspect]
     Indication: PAIN
     Dosage: 3.398 MCG/DAY
     Route: 037
     Dates: start: 20120104, end: 20120303
  2. ZICONOTIDE [Suspect]
     Indication: COMPLEX REGIONAL PAIN SYNDROME
     Dosage: 3.398 MCG/DAY
     Route: 037
     Dates: start: 20120104, end: 20120303

REACTIONS (7)
  - AGITATION [None]
  - AGGRESSION [None]
  - HALLUCINATION, AUDITORY [None]
  - PSYCHOTIC DISORDER [None]
  - MENTAL STATUS CHANGES [None]
  - CRYING [None]
  - IRRITABILITY [None]
